FAERS Safety Report 5192051-7 (Version None)
Quarter: 2006Q4

REPORT INFORMATION
  Report Type: 
  Country: None (occurrence: None)
  Receive Date: 20061220
  Receipt Date: 20061211
  Transmission Date: 20070319
  Serious: Yes (Death, Life-Threatening, Hospitalization)
  Sender: FDA-Public Use
  Company Number: 2006145487

PATIENT
  Age: 54 Year
  Sex: Female

DRUGS (1)
  1. SUTENT [Suspect]
     Indication: METASTATIC RENAL CELL CARCINOMA
     Dosage: 50 MG, ORAL
     Route: 048
     Dates: start: 20060713

REACTIONS (3)
  - CARDIAC FAILURE [None]
  - CARDIOTOXICITY [None]
  - PLEURAL EFFUSION [None]
